FAERS Safety Report 9606130 (Version 1)
Quarter: 2013Q4

REPORT INFORMATION
  Report Type: Spontaneous
  Country: US (occurrence: US)
  Receive Date: 20131008
  Receipt Date: 20131008
  Transmission Date: 20140711
  Serious: No
  Sender: FDA-Public Use
  Company Number: US-AMGEN-USASP2013043641

PATIENT
  Age: 70 Year
  Sex: Female

DRUGS (5)
  1. PROLIA [Suspect]
     Indication: OSTEOPOROSIS POSTMENOPAUSAL
     Dosage: UNK
     Dates: start: 2011
  2. WARFARIN [Concomitant]
  3. SOTALOL [Concomitant]
  4. LEVOTHYROXINE [Concomitant]
  5. URSODIOL [Concomitant]

REACTIONS (2)
  - Bone density abnormal [Not Recovered/Not Resolved]
  - Inappropriate schedule of drug administration [Unknown]
